FAERS Safety Report 8896234 (Version 1)
Quarter: 2012Q4

REPORT INFORMATION
  Report Type: Spontaneous
  Country: US (occurrence: None)
  Receive Date: 20121106
  Receipt Date: 20121106
  Transmission Date: 20130627
  Serious: Yes (Death)
  Sender: FDA-Public Use
  Company Number: None

PATIENT
  Age: 15 Year
  Sex: Male
  Weight: 61.24 kg

DRUGS (1)
  1. FENTANYL [Suspect]
     Route: 062

REACTIONS (3)
  - Self-medication [None]
  - Incorrect route of drug administration [None]
  - Intentional drug misuse [None]
